FAERS Safety Report 10453931 (Version 2)
Quarter: 2014Q4

REPORT INFORMATION
  Report Type: Report from Study
  Country: US (occurrence: US)
  Receive Date: 20140915
  Receipt Date: 20141114
  Transmission Date: 20150528
  Serious: Yes (Hospitalization)
  Sender: FDA-Public Use
  Company Number: US-TAKEDA-2014MPI002417

PATIENT
  Age: 67 Year
  Sex: Female
  Weight: 61.95 kg

DRUGS (3)
  1. CYCLOPHOSPHAMIDE. [Suspect]
     Active Substance: CYCLOPHOSPHAMIDE
     Indication: PLASMA CELL MYELOMA
     Dosage: 50 MG, TAKE 5 DAYS, ONE DAY A WEEK ON CHEMO WEEKS
     Route: 048
     Dates: start: 20131015
  2. DEXAMETHASONE. [Suspect]
     Active Substance: DEXAMETHASONE
     Indication: PLASMA CELL MYELOMA
     Dosage: 40 MG, DAYS 1-4 AND 9-12
     Route: 048
     Dates: start: 20130602
  3. VELCADE [Suspect]
     Active Substance: BORTEZOMIB
     Indication: PLASMA CELL MYELOMA
     Dosage: 1.3 MG/M2, DAY 1, 4, 8, 11
     Route: 042
     Dates: start: 20130602

REACTIONS (1)
  - Non-cardiac chest pain [Recovered/Resolved]

NARRATIVE: CASE EVENT DATE: 20131205
